FAERS Safety Report 9860675 (Version 1)
Quarter: 2014Q1

REPORT INFORMATION
  Report Type: Spontaneous
  Country: US (occurrence: None)
  Receive Date: 20140131
  Receipt Date: 20140131
  Transmission Date: 20141002
  Serious: No
  Sender: FDA-Public Use
  Company Number: None

PATIENT
  Age: 61 Year
  Sex: Female
  Weight: 88.45 kg

DRUGS (1)
  1. CYCLOBENZAPRINE [Suspect]
     Indication: MUSCLE STRAIN
     Dosage: 1 TABLET 2-3 TIMES PER DAY TAKEN BY MOUTH
     Route: 048
     Dates: start: 20131219, end: 20131222

REACTIONS (2)
  - Drug ineffective [None]
  - Product substitution issue [None]
